FAERS Safety Report 16539260 (Version 4)
Quarter: 2019Q4

REPORT INFORMATION
  Report Type: Spontaneous
  Country: DE (occurrence: DE)
  Receive Date: 20190708
  Receipt Date: 20191224
  Transmission Date: 20200122
  Serious: Yes (Death, Life-Threatening, Hospitalization, Other)
  Sender: FDA-Public Use
  Company Number: DE-ROCHE-2348859

PATIENT
  Age: 45 Year
  Sex: Female
  Weight: 70 kg

DRUGS (3)
  1. GAZYVARO [Suspect]
     Active Substance: OBINUTUZUMAB
     Indication: B-CELL LYMPHOMA
     Route: 042
     Dates: start: 20180219, end: 20190109
  2. BENDAMUSTINE [Suspect]
     Active Substance: BENDAMUSTINE
     Indication: B-CELL LYMPHOMA
     Route: 065
  3. RITUXIMAB. [Suspect]
     Active Substance: RITUXIMAB
     Indication: B-CELL LYMPHOMA
     Route: 065

REACTIONS (17)
  - Hypotension [Unknown]
  - Renal failure [Not Recovered/Not Resolved]
  - Off label use [Unknown]
  - Lower gastrointestinal haemorrhage [Fatal]
  - Enterovirus infection [Fatal]
  - Colitis ulcerative [Unknown]
  - Immunosuppression [Unknown]
  - Intentional product use issue [Unknown]
  - Retroperitoneal haemorrhage [Fatal]
  - Hypogammaglobulinaemia [Unknown]
  - Meningitis enteroviral [Fatal]
  - Acute hepatic failure [Fatal]
  - Deafness [Not Recovered/Not Resolved]
  - Multiple organ dysfunction syndrome [Fatal]
  - Large intestinal ulcer [Not Recovered/Not Resolved]
  - Disturbance in attention [Not Recovered/Not Resolved]
  - Seizure [Fatal]

NARRATIVE: CASE EVENT DATE: 2019
